FAERS Safety Report 17252478 (Version 1)
Quarter: 2020Q1

REPORT INFORMATION
  Report Type: Spontaneous
  Country: US (occurrence: US)
  Receive Date: 20200109
  Receipt Date: 20200109
  Transmission Date: 20200409
  Serious: No
  Sender: FDA-Public Use
  Company Number: US-009507513-2001USA002543

PATIENT
  Age: 57 Year
  Sex: Male

DRUGS (2)
  1. PROVENTIL [Suspect]
     Active Substance: ALBUTEROL
     Indication: DYSPNOEA
     Dosage: 1 OR 2 PUFFS EVERY 4 TO 6 HOURS AS NEEDED
  2. PROVENTIL [Suspect]
     Active Substance: ALBUTEROL
     Indication: COUGH
     Dosage: UNK
     Dates: start: 2000

REACTIONS (4)
  - No adverse event [Unknown]
  - Product quality issue [Unknown]
  - Poor quality device used [Unknown]
  - Product dose omission [Unknown]

NARRATIVE: CASE EVENT DATE: 20200106
